FAERS Safety Report 4660358-5 (Version None)
Quarter: 2005Q2

REPORT INFORMATION
  Report Type: 
  Country: None (occurrence: None)
  Receive Date: 20050512
  Receipt Date: 20050504
  Transmission Date: 20051028
  Serious: Yes (Hospitalization)
  Sender: FDA-Public Use
  Company Number: PHEH2005US05144

PATIENT
  Age: 58 Year
  Sex: Female

DRUGS (3)
  1. LOPRESSOR [Suspect]
     Indication: ENDOCRINE HYPERTENSION
  2. LOPRESSOR [Suspect]
     Dosage: 200 MG, QD
     Route: 048
     Dates: start: 20050308
  3. LOPRESSOR [Suspect]
     Dosage: 300 MG, QD
     Route: 048

REACTIONS (5)
  - ANAEMIA [None]
  - BLOOD GLUCOSE INCREASED [None]
  - BLOOD PRESSURE INADEQUATELY CONTROLLED [None]
  - FAECAL OCCULT BLOOD POSITIVE [None]
  - OEDEMA PERIPHERAL [None]
